FAERS Safety Report 8817017 (Version 1)
Quarter: 2012Q4

REPORT INFORMATION
  Report Type: Spontaneous
  Country: US (occurrence: None)
  Receive Date: 20121003
  Receipt Date: 20121003
  Transmission Date: 20130627
  Serious: Yes (Disabling)
  Sender: FDA-Public Use
  Company Number: None

PATIENT
  Age: 74 Year
  Sex: Female
  Weight: 90.72 kg

DRUGS (2)
  1. MUCOSIL-10 [Suspect]
     Indication: YEAST INFECTION
     Dosage: 10 mls, twice daily
     Dates: start: 20120824, end: 20120828
  2. MUCOSIL [Concomitant]

REACTIONS (3)
  - Stomatitis [None]
  - Stomatitis [None]
  - Burning mouth syndrome [None]
